FAERS Safety Report 10004366 (Version 2)
Quarter: 2014Q1

REPORT INFORMATION
  Report Type: Report from Study
  Country: TR (occurrence: TR)
  Receive Date: 20140312
  Receipt Date: 20140312
  Transmission Date: 20141002
  Serious: Yes (Hospitalization)
  Sender: FDA-Public Use
  Company Number: TR-BRISTOL-MYERS SQUIBB COMPANY-19896323

PATIENT
  Age: 60 Year
  Sex: Male
  Weight: 100 kg

DRUGS (4)
  1. COUMADIN [Suspect]
     Indication: ATRIAL FIBRILLATION
     Dosage: 1DF= 5MG FOR 6 DAYS + 2.5MG FOR THE FOLLOWING DAY.
     Route: 048
  2. CORDARONE [Suspect]
     Dosage: TABS
  3. BELOC [Suspect]
     Indication: ATRIAL FIBRILLATION
     Dosage: TABS
  4. DIGOXIN [Suspect]

REACTIONS (9)
  - Cardiac failure [Unknown]
  - Arrhythmia [Unknown]
  - Hypertension [Unknown]
  - Lung infection [Unknown]
  - Dyspnoea [Unknown]
  - Blood urine present [Unknown]
  - Epistaxis [Unknown]
  - Blindness [Unknown]
  - Asthenia [Unknown]
